FAERS Safety Report 4482907-2 (Version None)
Quarter: 2004Q4

REPORT INFORMATION
  Report Type: 
  Country: None (occurrence: None)
  Receive Date: 20041022
  Receipt Date: 20041018
  Transmission Date: 20050328
  Serious: Yes (Hospitalization)
  Sender: FDA-Public Use
  Company Number: IT-MERCK-0410ITA00042

PATIENT
  Age: 93 Year
  Sex: Female

DRUGS (3)
  1. VIOXX [Suspect]
     Indication: PAIN
     Route: 048
     Dates: start: 20000101, end: 20041006
  2. VERAPAMIL HYDROCHLORIDE [Concomitant]
     Route: 048
  3. LORAZEPAM [Concomitant]
     Route: 048

REACTIONS (2)
  - ACUTE PULMONARY OEDEMA [None]
  - MYOCARDIAL INFARCTION [None]
